FAERS Safety Report 21997680 (Version 1)
Quarter: 2023Q1

REPORT INFORMATION
  Report Type: Report from Study
  Country: BR (occurrence: BR)
  Receive Date: 20230216
  Receipt Date: 20230216
  Transmission Date: 20230417
  Serious: Yes (Disabling, Other)
  Sender: FDA-Public Use
  Company Number: BR-CELLTRION INC.-2023BR003159

PATIENT

DRUGS (2)
  1. INFLIXIMAB [Suspect]
     Active Substance: INFLIXIMAB
     Indication: Crohn^s disease
     Dosage: 4 AMPOULES - EVERY 8 WEEKS
     Route: 042
     Dates: start: 20230110
  2. PREDNISOLONE [Concomitant]
     Active Substance: PREDNISOLONE
     Indication: Crohn^s disease
     Dosage: 40 MILLIGRAM, QD
     Route: 048

REACTIONS (5)
  - Crohn^s disease [Unknown]
  - Bedridden [Unknown]
  - Condition aggravated [Unknown]
  - Treatment delayed [Unknown]
  - Insurance issue [Unknown]

NARRATIVE: CASE EVENT DATE: 20230110
